FAERS Safety Report 10530924 (Version 1)
Quarter: 2014Q4

REPORT INFORMATION
  Report Type: Spontaneous
  Country: IT (occurrence: IT)
  Receive Date: 20141021
  Receipt Date: 20141021
  Transmission Date: 20150528
  Serious: Yes (Other)
  Sender: FDA-Public Use
  Company Number: IT-B.I. PHARMACEUTICALS,INC./RIDGEFIELD-2014-BI-50291YA

PATIENT
  Sex: Male

DRUGS (2)
  1. TAMSULOSINA [Suspect]
     Active Substance: TAMSULOSIN HYDROCHLORIDE
     Indication: CALCULUS URETERIC
     Dosage: 0.4 MG
     Route: 065
  2. DICLOFENAC [Concomitant]
     Active Substance: DICLOFENAC
     Indication: PRODUCT USED FOR UNKNOWN INDICATION
     Dosage: FORMULATION: INJECTION
     Route: 065

REACTIONS (2)
  - Orthostatic hypotension [Unknown]
  - Off label use [Unknown]
